FAERS Safety Report 18337264 (Version 2)
Quarter: 2020Q4

REPORT INFORMATION
  Report Type: Spontaneous
  Country: US (occurrence: US)
  Receive Date: 20201002
  Receipt Date: 20201007
  Transmission Date: 20210113
  Serious: No
  Sender: FDA-Public Use
  Company Number: US-ROCHE-2688351

PATIENT
  Sex: Male

DRUGS (4)
  1. COTELLIC [Suspect]
     Active Substance: COBIMETINIB
     Route: 065
  2. COTELLIC [Suspect]
     Active Substance: COBIMETINIB
     Indication: MALIGNANT MELANOMA
     Route: 065
     Dates: start: 20200805, end: 20200818
  3. ZELBORAF [Suspect]
     Active Substance: VEMURAFENIB
     Route: 065
  4. ZELBORAF [Suspect]
     Active Substance: VEMURAFENIB
     Indication: MALIGNANT MELANOMA
     Route: 065
     Dates: start: 20200805, end: 20200818

REACTIONS (5)
  - Rash [Unknown]
  - Oral mucosal blistering [Unknown]
  - Oropharyngeal blistering [Unknown]
  - Pyrexia [Unknown]
  - Fatigue [Unknown]
